FAERS Safety Report 15979566 (Version 9)
Quarter: 2021Q2

REPORT INFORMATION
  Report Type: Spontaneous
  Country: US (occurrence: US)
  Receive Date: 20190219
  Receipt Date: 20210430
  Transmission Date: 20210716
  Serious: No
  Sender: FDA-Public Use
  Company Number: US-PFIZER INC-2019071036

PATIENT
  Age: 22 Year
  Sex: Male
  Weight: 117.9 kg

DRUGS (5)
  1. GENOTROPIN [Suspect]
     Active Substance: SOMATROPIN
     Dosage: 0.6 MG, DAILY, 6 DAYS A WEEK
     Dates: start: 20101127
  2. GENOTROPIN [Suspect]
     Active Substance: SOMATROPIN
     Dosage: 0.6 MG, DAILY, 6 DAYS A WEEK
  3. GENOTROPIN [Suspect]
     Active Substance: SOMATROPIN
     Indication: GROWTH HORMONE DEFICIENCY
     Dosage: 1.5 MG, UNK
  4. GENOTROPIN [Suspect]
     Active Substance: SOMATROPIN
     Indication: SEPTO-OPTIC DYSPLASIA
     Dosage: 2.2 MG, UNK
     Dates: start: 20101127
  5. GENOTROPIN [Suspect]
     Active Substance: SOMATROPIN
     Dosage: 1 MG, UNK

REACTIONS (6)
  - Product dose omission issue [Unknown]
  - Product prescribing error [Unknown]
  - Device breakage [Unknown]
  - Arthralgia [Unknown]
  - Insulin-like growth factor increased [Not Recovered/Not Resolved]
  - Drug dose omission by device [Unknown]

NARRATIVE: CASE EVENT DATE: 201909
